FAERS Safety Report 4577589-5 (Version None)
Quarter: 2005Q1

REPORT INFORMATION
  Report Type: 
  Country: None (occurrence: None)
  Receive Date: 20050210
  Receipt Date: 20041005
  Transmission Date: 20050727
  Serious: Yes (Death, Hospitalization, Disabling, Other)
  Sender: FDA-Public Use
  Company Number: US-MERCK-0410USA00521

PATIENT
  Age: 75 Year
  Sex: Male

DRUGS (14)
  1. ZOCOR [Suspect]
     Indication: HYPERLIPIDAEMIA
     Route: 048
     Dates: start: 20000101, end: 20040610
  2. ZOCOR [Suspect]
     Indication: DYSLIPIDAEMIA
     Route: 048
     Dates: start: 20000101, end: 20040610
  3. MAGNESIUM OXIDE [Concomitant]
     Route: 048
  4. ATENOLOL [Concomitant]
     Route: 048
  5. PROTONIX [Concomitant]
     Route: 048
  6. VIOXX [Concomitant]
     Route: 048
  7. CASODEX [Concomitant]
     Route: 065
  8. COLACE [Concomitant]
     Route: 065
  9. SENOKOT [Concomitant]
     Route: 065
  10. MARINOL [Concomitant]
     Route: 065
  11. HORMONES (UNSPECIFIED) [Concomitant]
     Route: 065
  12. PREDNISONE [Concomitant]
     Route: 065
  13. ASPIRIN [Concomitant]
     Route: 065
  14. FLECAINIDE ACETATE [Concomitant]
     Route: 048

REACTIONS (10)
  - ASTHENIA [None]
  - DEATH [None]
  - DEHYDRATION [None]
  - DIFFICULTY IN WALKING [None]
  - DYSCHEZIA [None]
  - METASTASES TO SPINE [None]
  - MYOSITIS [None]
  - PAIN IN EXTREMITY [None]
  - PROSTATE CANCER METASTATIC [None]
  - URINARY INCONTINENCE [None]
